FAERS Safety Report 25068507 (Version 1)
Quarter: 2025Q1

REPORT INFORMATION
  Report Type: Spontaneous
  Country: US (occurrence: US)
  Receive Date: 20250312
  Receipt Date: 20250312
  Transmission Date: 20250409
  Serious: No
  Sender: SANOFI AVENTIS
  Company Number: US-SA-2025SA072136

PATIENT
  Age: 52 Year
  Sex: Male

DRUGS (17)
  1. DUPIXENT [Suspect]
     Active Substance: DUPILUMAB
     Indication: Asthma
     Dosage: 200 MG, QOW
     Dates: start: 20221201
  2. BOTOX [Concomitant]
     Active Substance: ONABOTULINUMTOXINA
  3. TRELEGY ELLIPTA [Concomitant]
     Active Substance: FLUTICASONE FUROATE\UMECLIDINIUM BROMIDE\VILANTEROL TRIFENATATE
  4. ALBUTEROL SULFATE [Concomitant]
     Active Substance: ALBUTEROL SULFATE
  5. AZITHROMYCIN [Concomitant]
     Active Substance: AZITHROMYCIN
  6. NURTEC ODT [Concomitant]
     Active Substance: RIMEGEPANT SULFATE
  7. VIAGRA [Concomitant]
     Active Substance: SILDENAFIL CITRATE
  8. MECLOFENAMATE SODIUM [Concomitant]
     Active Substance: MECLOFENAMATE SODIUM
  9. ASPIRIN [Concomitant]
     Active Substance: ASPIRIN
  10. VITAMIN D3 [Concomitant]
     Active Substance: CHOLECALCIFEROL
  11. MOMETASONE FUROATE [Concomitant]
     Active Substance: MOMETASONE FUROATE
  12. CRESTOR [Concomitant]
     Active Substance: ROSUVASTATIN CALCIUM
  13. VIIBRYD [Concomitant]
     Active Substance: VILAZODONE HYDROCHLORIDE
  14. QULIPTA [Concomitant]
     Active Substance: ATOGEPANT
  15. STRATTERA [Concomitant]
     Active Substance: ATOMOXETINE HYDROCHLORIDE
  16. CYCLOBENZAPRINE HYDROCHLORIDE [Concomitant]
     Active Substance: CYCLOBENZAPRINE HYDROCHLORIDE
  17. QUETIAPINE FUMARATE [Concomitant]
     Active Substance: QUETIAPINE FUMARATE

REACTIONS (1)
  - Vomiting [Recovered/Resolved]

NARRATIVE: CASE EVENT DATE: 20250101
